FAERS Safety Report 6701822-4 (Version None)
Quarter: 2010Q2

REPORT INFORMATION
  Report Type: 
  Country: None (occurrence: None)
  Receive Date: 20100427
  Receipt Date: 20100413
  Transmission Date: 20101027
  Serious: Yes (Other)
  Sender: FDA-Public Use
  Company Number: 009499

PATIENT
  Age: 18 Month
  Sex: Male

DRUGS (5)
  1. BUSULFAN              (BUSULFAN) INJECTION [Suspect]
     Indication: STEM CELL TRANSPLANT
     Dosage: 1.6 MG/KG, Q6HR
  2. CYCLOPHOSPHAMIDE [Concomitant]
  3. ETOPOSIDE [Concomitant]
  4. METHOTREXATE [Concomitant]
  5. CYCLOSPORINE [Concomitant]

REACTIONS (1)
  - CONVULSION [None]
